FAERS Safety Report 23102882 (Version 1)
Quarter: 2023Q4

REPORT INFORMATION
  Report Type: Spontaneous
  Country: FR (occurrence: FR)
  Receive Date: 20231025
  Receipt Date: 20231025
  Transmission Date: 20240109
  Serious: Yes (Death, Other)
  Sender: FDA-Public Use
  Company Number: None

PATIENT
  Age: 76 Year
  Sex: Male

DRUGS (11)
  1. OXALIPLATIN [Suspect]
     Active Substance: OXALIPLATIN
     Indication: Adenocarcinoma pancreas
     Dosage: 150 MG, QCY
     Route: 051
     Dates: start: 20200309, end: 20200409
  2. IRINOTECAN [Suspect]
     Active Substance: IRINOTECAN
     Indication: Adenocarcinoma pancreas
     Dosage: 320 MG, QCY
     Route: 051
     Dates: start: 20200309, end: 20200409
  3. FLUOROURACIL [Suspect]
     Active Substance: FLUOROURACIL
     Indication: Adenocarcinoma pancreas
     Dosage: 4.23 G, QCY
     Route: 051
     Dates: start: 20200309, end: 20200409
  4. LEVOLEUCOVORIN CALCIUM [Suspect]
     Active Substance: LEVOLEUCOVORIN CALCIUM
     Indication: Adenocarcinoma pancreas
     Dosage: 350 MG, QCY
     Route: 051
     Dates: start: 20200309, end: 20200409
  5. KARDEGIC [Concomitant]
     Active Substance: ASPIRIN DL-LYSINE
  6. RAMIPRIL [Concomitant]
     Active Substance: RAMIPRIL
  7. DOLIPRANE [Concomitant]
     Active Substance: ACETAMINOPHEN
  8. PANTOPRAZOLE [Concomitant]
     Active Substance: PANTOPRAZOLE
  9. INNOHEP [Concomitant]
     Active Substance: TINZAPARIN SODIUM
  10. ESIDREX [Concomitant]
     Active Substance: HYDROCHLOROTHIAZIDE
  11. FENOFIBRATE [Concomitant]
     Active Substance: FENOFIBRATE

REACTIONS (4)
  - Hypovolaemic shock [Fatal]
  - Pseudomembranous colitis [Fatal]
  - Septic shock [Fatal]
  - Clostridium difficile infection [Fatal]
